FAERS Safety Report 11262923 (Version 1)
Quarter: 2015Q3

REPORT INFORMATION
  Report Type: Spontaneous
  Country: SG (occurrence: SG)
  Receive Date: 20150710
  Receipt Date: 20150710
  Transmission Date: 20151125
  Serious: Yes (Other)
  Sender: FDA-Public Use
  Company Number: SG-BAXTER-2015BAX036209

PATIENT

DRUGS (2)
  1. ENDOXAN FOR INJECTION 1G /VIAL [Suspect]
     Active Substance: CYCLOPHOSPHAMIDE
     Indication: PRODUCT USED FOR UNKNOWN INDICATION
     Route: 042
  2. UROMITEXAN INJECTION 100 MG/ML [Suspect]
     Active Substance: MESNA
     Indication: PROPHYLAXIS
     Route: 042

REACTIONS (1)
  - Cystitis haemorrhagic [Unknown]
